FAERS Safety Report 15820918 (Version 1)
Quarter: 2019Q1

REPORT INFORMATION
  Report Type: Spontaneous
  Country: US (occurrence: US)
  Receive Date: 20190114
  Receipt Date: 20190114
  Transmission Date: 20190417
  Serious: Yes (Other)
  Sender: FDA-Public Use
  Company Number: US-BAYER-2019-007745

PATIENT
  Age: 68 Year
  Sex: Male
  Weight: 91 kg

DRUGS (2)
  1. ALKA-SELTZER PLUS MAXIMUM STRENGTH DAY COLD AND FLU [Suspect]
     Active Substance: ACETAMINOPHEN\DEXTROMETHORPHAN HYDROBROMIDE\PHENYLEPHRINE HYDROCHLORIDE
     Indication: HYPERSENSITIVITY
     Dosage: 2 DF
     Route: 048
     Dates: start: 201901, end: 201901
  2. ALKA-SELTZER PLUS MAXIMUM STRENGTH DAY COLD AND FLU [Suspect]
     Active Substance: ACETAMINOPHEN\DEXTROMETHORPHAN HYDROBROMIDE\PHENYLEPHRINE HYDROCHLORIDE
     Indication: NASOPHARYNGITIS

REACTIONS (3)
  - Foreign body in respiratory tract [Recovered/Resolved]
  - Underdose [Unknown]
  - Choking [Recovered/Resolved]

NARRATIVE: CASE EVENT DATE: 201901
